FAERS Safety Report 10060898 (Version 2)
Quarter: 2014Q4

REPORT INFORMATION
  Report Type: Spontaneous
  Country: US (occurrence: US)
  Receive Date: 20140404
  Receipt Date: 20141002
  Transmission Date: 20150528
  Serious: Yes (Hospitalization, Other)
  Sender: FDA-Public Use
  Company Number: US-GILEAD-2014-0098605

PATIENT
  Age: 16 Year
  Sex: Female

DRUGS (4)
  1. LETAIRIS [Suspect]
     Active Substance: AMBRISENTAN
     Indication: MITRAL VALVE STENOSIS
  2. LETAIRIS [Suspect]
     Active Substance: AMBRISENTAN
     Indication: BICUSPID AORTIC VALVE
  3. LETAIRIS [Suspect]
     Active Substance: AMBRISENTAN
     Indication: PULMONARY HYPERTENSION
     Dosage: 5 MG, QD
     Route: 065
     Dates: start: 20120813
  4. LETAIRIS [Suspect]
     Active Substance: AMBRISENTAN
     Indication: COARCTATION OF THE AORTA

REACTIONS (2)
  - Syncope [Unknown]
  - Fall [Unknown]
